FAERS Safety Report 6074802-2 (Version None)
Quarter: 2009Q1

REPORT INFORMATION
  Report Type: 
  Country: None (occurrence: None)
  Receive Date: 20090212
  Receipt Date: 20090206
  Transmission Date: 20090719
  Serious: Yes (Hospitalization, Other)
  Sender: FDA-Public Use
  Company Number: US-BAYER-200910874NA

PATIENT
  Age: 34 Year
  Sex: Male
  Weight: 98 kg

DRUGS (1)
  1. AVELOX [Suspect]
     Indication: BRONCHITIS
     Dates: start: 20090112

REACTIONS (5)
  - ANAPHYLACTIC REACTION [None]
  - CHEST DISCOMFORT [None]
  - DYSPNOEA [None]
  - EYE SWELLING [None]
  - HYPERHIDROSIS [None]
